FAERS Safety Report 6971661-8 (Version None)
Quarter: 2010Q3

REPORT INFORMATION
  Report Type: 
  Country: None (occurrence: None)
  Receive Date: 20100908
  Receipt Date: 20100826
  Transmission Date: 20110219
  Serious: Yes (Other)
  Sender: FDA-Public Use
  Company Number: PHHY2010NL48282

PATIENT
  Sex: Female

DRUGS (15)
  1. ZOMETA [Suspect]
     Dosage: 4 MG/ 5ML
     Dates: start: 20090622
  2. ZOMETA [Suspect]
     Dosage: 4 MG/ 5ML
     Dates: start: 20090722
  3. ZOMETA [Suspect]
     Dosage: 4 MG/ 5ML
     Dates: start: 20090819
  4. ZOMETA [Suspect]
     Dosage: 4 MG/ 5ML
     Dates: start: 20090916
  5. ZOMETA [Suspect]
     Dosage: 4 MG/ 5ML
     Dates: start: 20091014
  6. ZOMETA [Suspect]
     Dosage: 4 MG/ 5ML
     Dates: start: 20091111
  7. ZOMETA [Suspect]
     Dosage: 4 MG/ 5ML
     Dates: start: 20091209
  8. ZOMETA [Suspect]
     Dosage: 4 MG/ 5ML
     Dates: start: 20100107
  9. ZOMETA [Suspect]
     Dosage: 4 MG/ 5ML
     Dates: start: 20100303
  10. ZOMETA [Suspect]
     Dosage: 4 MG/ 5ML
     Dates: start: 20100307
  11. ZOMETA [Suspect]
     Dosage: 4 MG/ 5ML
     Dates: start: 20100331
  12. ZOMETA [Suspect]
     Dosage: 4 MG/ 5ML
     Dates: start: 20100429
  13. ZOMETA [Suspect]
     Dosage: 4 MG/ 5ML
     Dates: start: 20100527
  14. ZOMETA [Suspect]
     Dosage: 4 MG/ 5ML
     Dates: start: 20100624
  15. ZOMETA [Suspect]
     Dosage: 4 MG/ 5ML
     Dates: start: 20100721

REACTIONS (3)
  - DYSPNOEA [None]
  - PLEURAL EFFUSION [None]
  - THORACIC CAVITY DRAINAGE [None]
